FAERS Safety Report 8955059 (Version 1)
Quarter: 2012Q4

REPORT INFORMATION
  Report Type: 
  Country: US (occurrence: US)
  Receive Date: 20121207
  Receipt Date: 20121207
  Transmission Date: 20130627
  Serious: Yes (Hospitalization, Other)
  Sender: FDA-Public Use
  Company Number: US-TARO-2012P1066189

PATIENT
  Age: 49 Year
  Sex: Male
  Weight: 120.2 kg

DRUGS (3)
  1. TRIAMCINOLONE ACETONIDE [Suspect]
     Route: 061
     Dates: start: 20120509
  2. IBUPROFEN [Concomitant]
  3. IBUPROFEN [Concomitant]

REACTIONS (15)
  - Meningitis bacterial [Recovered/Resolved]
  - Back pain [Not Recovered/Not Resolved]
  - Fall [Recovered/Resolved]
  - Asthenia [Not Recovered/Not Resolved]
  - Laceration [Unknown]
  - Coma [Recovered/Resolved]
  - Weight decreased [Unknown]
  - Sepsis [Unknown]
  - Drug ineffective for unapproved indication [Not Recovered/Not Resolved]
  - Walking aid user [Not Recovered/Not Resolved]
  - Muscle injury [Unknown]
  - Nerve injury [Unknown]
  - Liver injury [Unknown]
  - Delirium [None]
  - Incoherent [None]
